FAERS Safety Report 14706917 (Version 14)
Quarter: 2019Q1

REPORT INFORMATION
  Report Type: Spontaneous
  Country: CA (occurrence: CA)
  Receive Date: 20180403
  Receipt Date: 20190123
  Transmission Date: 20190417
  Serious: Yes (Hospitalization, Other)
  Sender: FDA-Public Use
  Company Number: CA-ROCHE-2098889

PATIENT
  Age: 51 Year
  Sex: Female

DRUGS (17)
  1. XOLAIR [Suspect]
     Active Substance: OMALIZUMAB
     Route: 058
     Dates: start: 20180104
  2. SPIRIVA [Suspect]
     Active Substance: TIOTROPIUM BROMIDE MONOHYDRATE
     Dosage: 2 PUFFS
     Route: 065
  3. PREDNISONE. [Suspect]
     Active Substance: PREDNISONE
     Route: 048
  4. ADVAIR HFA [Concomitant]
     Active Substance: FLUTICASONE PROPIONATE\SALMETEROL XINAFOATE
     Indication: PRODUCT USED FOR UNKNOWN INDICATION
     Route: 065
  5. XOLAIR [Suspect]
     Active Substance: OMALIZUMAB
     Route: 058
     Dates: start: 20180921
  6. PREDNISONE. [Suspect]
     Active Substance: PREDNISONE
     Route: 048
  7. CLARITHROMYCIN. [Concomitant]
     Active Substance: CLARITHROMYCIN
     Indication: PRODUCT USED FOR UNKNOWN INDICATION
     Route: 065
  8. MONTELUKAST [Concomitant]
     Active Substance: MONTELUKAST SODIUM
     Indication: PRODUCT USED FOR UNKNOWN INDICATION
     Route: 065
  9. XOLAIR [Suspect]
     Active Substance: OMALIZUMAB
     Indication: ASTHMA
     Route: 058
     Dates: start: 20081014
  10. XOLAIR [Suspect]
     Active Substance: OMALIZUMAB
     Route: 058
     Dates: start: 20180122
  11. XOLAIR [Suspect]
     Active Substance: OMALIZUMAB
     Route: 058
     Dates: start: 20181114
  12. XOLAIR [Suspect]
     Active Substance: OMALIZUMAB
     Route: 058
     Dates: start: 20180604
  13. XOLAIR [Suspect]
     Active Substance: OMALIZUMAB
     Route: 058
     Dates: start: 20181011
  14. PREDNISONE. [Suspect]
     Active Substance: PREDNISONE
     Indication: GASTRITIS
     Route: 048
  15. TINZAPARIN [Concomitant]
     Active Substance: TINZAPARIN
     Indication: PRODUCT USED FOR UNKNOWN INDICATION
     Route: 065
  16. SPIRIVA [Suspect]
     Active Substance: TIOTROPIUM BROMIDE MONOHYDRATE
     Indication: INFLUENZA
     Dosage: 2 PUFFS
     Route: 055
  17. DEXILANT [Concomitant]
     Active Substance: DEXLANSOPRAZOLE
     Indication: PRODUCT USED FOR UNKNOWN INDICATION
     Route: 065

REACTIONS (33)
  - Loss of consciousness [Unknown]
  - Feeling abnormal [Unknown]
  - Lymphadenopathy [Unknown]
  - Bronchitis [Unknown]
  - Wheezing [Unknown]
  - Palpitations [Recovered/Resolved]
  - Fear of injection [Unknown]
  - Smoke sensitivity [Unknown]
  - Sleep disorder [Recovering/Resolving]
  - Seizure [Recovering/Resolving]
  - Pneumonia bacterial [Recovering/Resolving]
  - Food poisoning [Unknown]
  - Influenza [Not Recovered/Not Resolved]
  - Aphonia [Unknown]
  - Malaise [Not Recovered/Not Resolved]
  - Gastritis [Recovering/Resolving]
  - Insomnia [Unknown]
  - Head injury [Unknown]
  - Pneumonia [Unknown]
  - Immune system disorder [Unknown]
  - Nausea [Recovering/Resolving]
  - Vomiting [Recovering/Resolving]
  - Haemoptysis [Unknown]
  - Discomfort [Unknown]
  - Cough [Unknown]
  - Dyspnoea [Unknown]
  - Fatigue [Unknown]
  - Bacterial infection [Unknown]
  - Asthma [Unknown]
  - Sputum discoloured [Unknown]
  - Diarrhoea [Not Recovered/Not Resolved]
  - Throat clearing [Unknown]
  - Lung disorder [Unknown]

NARRATIVE: CASE EVENT DATE: 20180118
